FAERS Safety Report 7907576-8 (Version None)
Quarter: 2011Q4

REPORT INFORMATION
  Report Type: 
  Country: None (occurrence: None)
  Receive Date: 20111109
  Receipt Date: 20111109
  Transmission Date: 20120403
  Serious: Yes (Disabling)
  Sender: FDA-Public Use
  Company Number: None

PATIENT
  Sex: Male
  Weight: 113.3993 kg

DRUGS (1)
  1. NORTRIPTYLINE HCL [Suspect]
     Indication: DEPRESSION
     Dosage: 125 MG DAILY
     Dates: start: 20090220

REACTIONS (19)
  - BALANCE DISORDER [None]
  - NERVE INJURY [None]
  - CARDIAC DISORDER [None]
  - CONSTIPATION [None]
  - ABDOMINAL PAIN UPPER [None]
  - FALL [None]
  - PARALYSIS [None]
  - PANIC REACTION [None]
  - AMNESIA [None]
  - MUSCULOSKELETAL DISORDER [None]
  - BLADDER DISORDER [None]
  - NERVOUSNESS [None]
  - STRESS [None]
  - TOXICITY TO VARIOUS AGENTS [None]
  - HEADACHE [None]
  - DIARRHOEA [None]
  - MUSCLE INJURY [None]
  - TREMOR [None]
  - MENTAL DISORDER [None]
